FAERS Safety Report 10608782 (Version 1)
Quarter: 2014Q4

REPORT INFORMATION
  Report Type: Spontaneous
  Country: FR (occurrence: FR)
  Receive Date: 20141125
  Receipt Date: 20141125
  Transmission Date: 20150529
  Serious: Yes (Death, Congenital Anomaly, Other)
  Sender: FDA-Public Use
  Company Number: FR-GLAXOSMITHKLINE-FR2014GSK025063

PATIENT
  Sex: Male

DRUGS (1)
  1. LAMICTAL [Suspect]
     Active Substance: LAMOTRIGINE
     Indication: EPILEPSY
     Dosage: 150 MG, QD
     Route: 064
     Dates: end: 201409

REACTIONS (5)
  - Bicuspid aortic valve [Fatal]
  - Potter^s syndrome [Fatal]
  - Single umbilical artery [Fatal]
  - Congenital nose malformation [Fatal]
  - Foetal growth restriction [Fatal]

NARRATIVE: CASE EVENT DATE: 201409
